FAERS Safety Report 6162791-1 (Version None)
Quarter: 2009Q2

REPORT INFORMATION
  Report Type: 
  Country: None (occurrence: None)
  Receive Date: 20090421
  Receipt Date: 20080728
  Transmission Date: 20091009
  Serious: No
  Sender: FDA-Public Use
  Company Number: US-ASTRAZENECA-2008UW14619

PATIENT
  Age: 63 Year
  Sex: Male

DRUGS (1)
  1. TOPROL-XL [Suspect]
     Route: 048

REACTIONS (4)
  - BLOOD CHOLESTEROL INCREASED [None]
  - FIBROMYALGIA [None]
  - RAYNAUD'S PHENOMENON [None]
  - SYSTEMIC LUPUS ERYTHEMATOSUS [None]
